FAERS Safety Report 4440320-8 (Version None)
Quarter: 2004Q3

REPORT INFORMATION
  Report Type: 
  Country: None (occurrence: None)
  Receive Date: 20040902
  Receipt Date: 20040818
  Transmission Date: 20050211
  Serious: Yes (Life-Threatening, Hospitalization)
  Sender: FDA-Public Use
  Company Number: 04-00485

PATIENT
  Age: 73 Year
  Sex: Male

DRUGS (3)
  1. LISINOPRIL [Suspect]
     Indication: HYPERTENSION
     Dosage: 40MG A DAY
  2. LISINOPRIL [Suspect]
     Indication: OEDEMA PERIPHERAL
     Dosage: 40MG A DAY
  3. FUROSEMIDE [Concomitant]

REACTIONS (13)
  - ACIDOSIS [None]
  - BLOOD BICARBONATE DECREASED [None]
  - BLOOD CHLORIDE DECREASED [None]
  - BLOOD PRESSURE DIASTOLIC DECREASED [None]
  - DIARRHOEA [None]
  - ELECTROCARDIOGRAM T WAVE PEAKED [None]
  - FREQUENT BOWEL MOVEMENTS [None]
  - HAEMODIALYSIS [None]
  - HEART RATE DECREASED [None]
  - HYPERKALAEMIA [None]
  - HYPOVOLAEMIA [None]
  - OLIGURIA [None]
  - RENAL FAILURE [None]
